FAERS Safety Report 4587526-5 (Version None)
Quarter: 2005Q1

REPORT INFORMATION
  Report Type: 
  Country: None (occurrence: None)
  Receive Date: 20050215
  Receipt Date: 20020119
  Transmission Date: 20050727
  Serious: No
  Sender: FDA-Public Use
  Company Number: ADE-2002-001

PATIENT
  Sex: Female

DRUGS (1)
  1. BUTALBITAL, ACETAMINOPHEN, CAFFEINE [Suspect]
     Indication: TENSION HEADACHE

REACTIONS (1)
  - PRURITUS GENERALISED [None]
